FAERS Safety Report 5784532-X (Version None)
Quarter: 2008Q2

REPORT INFORMATION
  Report Type: 
  Country: None (occurrence: None)
  Receive Date: 20080605
  Receipt Date: 20080408
  Transmission Date: 20081010
  Serious: No
  Sender: FDA-Public Use
  Company Number: A0721598A

PATIENT
  Age: 41 Year
  Sex: Female

DRUGS (1)
  1. ALLI [Suspect]

REACTIONS (5)
  - BACK PAIN [None]
  - DRY SKIN [None]
  - DYSURIA [None]
  - GINGIVAL PAIN [None]
  - HAIR TEXTURE ABNORMAL [None]
